FAERS Safety Report 8287576-1 (Version None)
Quarter: 2012Q2

REPORT INFORMATION
  Report Type: 
  Country: None (occurrence: None)
  Receive Date: 20120416
  Receipt Date: 20120407
  Transmission Date: 20120825
  Serious: Yes (Hospitalization, Other)
  Sender: FDA-Public Use
  Company Number: PHHY2012MX030142

PATIENT
  Sex: Female

DRUGS (2)
  1. GLIVENOL [Concomitant]
     Indication: VEIN DISORDER
     Dosage: UNK UKN, UNK
  2. DIOVAN HCT [Suspect]
     Indication: HYPERTENSION
     Dosage: 1 DF X (160/12.5 MG), DAILY
     Dates: start: 20070101

REACTIONS (5)
  - HEART RATE DECREASED [None]
  - HYPOTHYROIDISM [None]
  - ARRHYTHMIA [None]
  - ASTHENIA [None]
  - GASTRITIS EROSIVE [None]
